FAERS Safety Report 25211778 (Version 2)
Quarter: 2025Q2

REPORT INFORMATION
  Report Type: Spontaneous
  Country: US (occurrence: US)
  Receive Date: 20250418
  Receipt Date: 20250521
  Transmission Date: 20250717
  Serious: No
  Sender: ROCHE
  Company Number: US-ROCHE-10000257117

PATIENT
  Age: 57 Year
  Sex: Male
  Weight: 86.18 kg

DRUGS (3)
  1. OCREVUS [Suspect]
     Active Substance: OCRELIZUMAB
     Indication: Multiple sclerosis
     Dosage: ON 26-FEB-2025, HE RECEIVED MOST RECENT DOSE OF OCRELIZUMAB.
     Route: 042
     Dates: start: 2020
  2. TYSABRI [Concomitant]
     Active Substance: NATALIZUMAB
  3. REBIF [Concomitant]
     Active Substance: INTERFERON BETA-1A

REACTIONS (1)
  - Pyoderma gangrenosum [Not Recovered/Not Resolved]

NARRATIVE: CASE EVENT DATE: 20250201
